FAERS Safety Report 19173070 (Version 1)
Quarter: 2021Q2

REPORT INFORMATION
  Report Type: Spontaneous
  Country: US (occurrence: US)
  Receive Date: 20210422
  Receipt Date: 20210422
  Transmission Date: 20210717
  Serious: Yes (Hospitalization)
  Sender: FDA-Public Use
  Company Number: None

PATIENT
  Sex: Male

DRUGS (2)
  1. UNKNOWN [Concomitant]
     Active Substance: UNSPECIFIED INGREDIENT
  2. MESNEX [Suspect]
     Active Substance: MESNA
     Indication: CHEMOTHERAPY
     Dosage: ?          OTHER FREQUENCY:ONCE AFTER INFUSIO;?
     Route: 048
     Dates: start: 20210326

REACTIONS (2)
  - Hospitalisation [None]
  - Product use issue [None]
